FAERS Safety Report 5006153-9 (Version None)
Quarter: 2006Q1

REPORT INFORMATION
  Report Type: 
  Country: None (occurrence: None)
  Receive Date: 20060328
  Receipt Date: 20051003
  Transmission Date: 20060701
  Serious: Yes (Hospitalization)
  Sender: FDA-Public Use
  Company Number: K200501330

PATIENT
  Sex: Female

DRUGS (4)
  1. ALTACE [Suspect]
     Dosage: ORAL
     Route: 048
  2. INSULIN [Concomitant]
  3. CALAN [Concomitant]
  4. PLAVIX [Concomitant]

REACTIONS (3)
  - BLOOD GLUCOSE INCREASED [None]
  - DYSPNOEA [None]
  - SWOLLEN TONGUE [None]
